FAERS Safety Report 6814103-5 (Version None)
Quarter: 2010Q3

REPORT INFORMATION
  Report Type: 
  Country: None (occurrence: None)
  Receive Date: 20100702
  Receipt Date: 20091203
  Transmission Date: 20110219
  Serious: No
  Sender: FDA-Public Use
  Company Number: A0811989A

PATIENT
  Age: 67 Year
  Sex: Female

DRUGS (2)
  1. ADVAIR DISKUS 100/50 [Suspect]
     Indication: EMPHYSEMA
     Dosage: 2PUFF TWICE PER DAY
     Route: 055
     Dates: start: 20081001
  2. LIVER CAPS [Concomitant]

REACTIONS (5)
  - DYSPHONIA [None]
  - DYSPNOEA [None]
  - INCREASED UPPER AIRWAY SECRETION [None]
  - PRODUCT QUALITY ISSUE [None]
  - VOCAL CORD DISORDER [None]
